FAERS Safety Report 18312408 (Version 1)
Quarter: 2020Q3

REPORT INFORMATION
  Report Type: Spontaneous
  Country: US (occurrence: US)
  Receive Date: 20200924
  Receipt Date: 20200924
  Transmission Date: 20201103
  Serious: No
  Sender: FDA-Public Use
  Company Number: None

PATIENT
  Age: 59 Year
  Sex: Male

DRUGS (17)
  1. POTASSIUM TABLETS [Concomitant]
  2. BENZONATATE. [Concomitant]
     Active Substance: BENZONATATE
  3. PROTONIX [Concomitant]
     Active Substance: PANTOPRAZOLE SODIUM
  4. REMDESIVIR. [Suspect]
     Active Substance: REMDESIVIR
     Indication: COVID-19
     Dates: start: 20200729, end: 20200802
  5. ASCORBIC ACID. [Concomitant]
     Active Substance: ASCORBIC ACID
  6. BUDESONIDE. [Concomitant]
     Active Substance: BUDESONIDE
  7. DOXYCYCLINE. [Concomitant]
     Active Substance: DOXYCYCLINE
  8. ENOXAPARIN [Concomitant]
     Active Substance: ENOXAPARIN
  9. SYNTHROID [Concomitant]
     Active Substance: LEVOTHYROXINE SODIUM
  10. ZINC GLUCONATE [Concomitant]
     Active Substance: ZINC GLUCONATE
  11. VITAMIN D3 [Concomitant]
     Active Substance: CHOLECALCIFEROL
  12. DEXAMETHASONE. [Concomitant]
     Active Substance: DEXAMETHASONE
  13. ROBITUSSIN DM [Concomitant]
     Active Substance: DEXTROMETHORPHAN HYDROBROMIDE\GUAIFENESIN
  14. ZOCOR [Concomitant]
     Active Substance: SIMVASTATIN
  15. BICARBONATE TABLETS [Concomitant]
  16. SENNA PLUS [Concomitant]
     Active Substance: DOCUSATE SODIUM\SENNOSIDES\SENNOSIDES A AND B
  17. SLIDING SCALE INSULIN [Concomitant]
     Active Substance: INSULIN NOS

REACTIONS (1)
  - Bradycardia [None]
